FAERS Safety Report 5869244-6 (Version None)
Quarter: 2008Q3

REPORT INFORMATION
  Report Type: 
  Country: None (occurrence: None)
  Receive Date: 20080903
  Receipt Date: 20080821
  Transmission Date: 20090109
  Serious: Yes (Hospitalization, Other)
  Sender: FDA-Public Use
  Company Number: US-ELI_LILLY_AND_COMPANY-US200808004671

PATIENT
  Age: 76 Year
  Sex: Male

DRUGS (3)
  1. HUMULIN R [Suspect]
  2. AVANDIA [Concomitant]
  3. WATER PILLS [Concomitant]

REACTIONS (9)
  - ANGIOEDEMA [None]
  - BLINDNESS UNILATERAL [None]
  - DRUG HYPERSENSITIVITY [None]
  - EYE SWELLING [None]
  - HYPERSENSITIVITY [None]
  - LIP SWELLING [None]
  - MENTAL IMPAIRMENT [None]
  - URTICARIA [None]
  - WHEEZING [None]
